FAERS Safety Report 7490741-4 (Version None)
Quarter: 2011Q2

REPORT INFORMATION
  Report Type: 
  Country: None (occurrence: None)
  Receive Date: 20110519
  Receipt Date: 20090316
  Transmission Date: 20111010
  Serious: Yes (Death, Other)
  Sender: FDA-Public Use
  Company Number: US-BAYER-200915533NA

PATIENT
  Age: 73 Year
  Weight: 57 kg

DRUGS (5)
  1. FENTANYL [Concomitant]
     Dosage: UNK
     Route: 042
     Dates: start: 20001227
  2. PROTAMINE SULFATE [Concomitant]
     Dosage: UNK
     Route: 042
     Dates: start: 20001227
  3. LASIX [Concomitant]
     Dosage: 20MG
     Route: 042
     Dates: start: 20001227
  4. RED BLOOD CELLS [Concomitant]
     Dosage: UNK
     Dates: start: 20001227
  5. TRASYLOL [Suspect]
     Indication: CORONARY ARTERY BYPASS
     Dosage: TEST DOSE (1ML) LOADING DOSE (300ML)
     Route: 042
     Dates: start: 20001227, end: 20001227

REACTIONS (10)
  - CEREBROVASCULAR ACCIDENT [None]
  - ADVERSE EVENT [None]
  - ANHEDONIA [None]
  - RENAL FAILURE [None]
  - DEATH [None]
  - INJURY [None]
  - ANXIETY [None]
  - DEPRESSION [None]
  - FEAR [None]
  - PAIN [None]
